FAERS Safety Report 23527682 (Version 1)
Quarter: 2024Q1

REPORT INFORMATION
  Report Type: Report from Study
  Country: MX (occurrence: MX)
  Receive Date: 20240215
  Receipt Date: 20240215
  Transmission Date: 20240410
  Serious: Yes (Hospitalization)
  Sender: FDA-Public Use
  Company Number: MX-JNJFOC-20240224606

PATIENT
  Age: 73 Year
  Sex: Male
  Weight: 55 kg

DRUGS (2)
  1. TECLISTAMAB [Suspect]
     Active Substance: TECLISTAMAB
     Indication: Plasma cell myeloma
     Route: 058
     Dates: start: 20231005, end: 20240123
  2. TAMSULOSIN [Concomitant]
     Active Substance: TAMSULOSIN
     Indication: Prostatomegaly
     Dosage: DOSE: 0.4/0.5?TAMSULOSIN ALDUTASTERIDA(SIC)
     Route: 065
     Dates: start: 2017

REACTIONS (1)
  - Herpes virus infection [Recovering/Resolving]

NARRATIVE: CASE EVENT DATE: 20240128
